FAERS Safety Report 18801689 (Version 1)
Quarter: 2021Q1

REPORT INFORMATION
  Report Type: Spontaneous
  Country: HR (occurrence: HR)
  Receive Date: 20210128
  Receipt Date: 20210128
  Transmission Date: 20210419
  Serious: Yes (Other)
  Sender: FDA-Public Use
  Company Number: HR-TEVA-2021-HR-1873033

PATIENT
  Age: 36 Year
  Sex: Male

DRUGS (1)
  1. QUETIAPIN [Suspect]
     Active Substance: QUETIAPINE
     Dosage: 1500MG
     Route: 048
     Dates: start: 20201229, end: 20201229

REACTIONS (3)
  - Intentional overdose [Unknown]
  - Suicide attempt [Unknown]
  - Somnolence [Unknown]

NARRATIVE: CASE EVENT DATE: 20201229
